FAERS Safety Report 10767837 (Version 3)
Quarter: 2015Q3

REPORT INFORMATION
  Report Type: Report from Study
  Country: US (occurrence: US)
  Receive Date: 20150205
  Receipt Date: 20150819
  Transmission Date: 20151125
  Serious: No
  Sender: FDA-Public Use
  Company Number: US-GILEAD-2015-0135905

PATIENT
  Age: 68 Year
  Sex: Female

DRUGS (3)
  1. AMBRISENTAN [Suspect]
     Active Substance: AMBRISENTAN
     Indication: PRODUCT USED FOR UNKNOWN INDICATION
     Dosage: 10 MG, QD
     Route: 065
     Dates: start: 20130315
  2. REMODULIN [Concomitant]
     Active Substance: TREPROSTINIL
  3. VENTAVIS [Concomitant]
     Active Substance: ILOPROST

REACTIONS (9)
  - Gait disturbance [Unknown]
  - Asthenia [Unknown]
  - Weight increased [Unknown]
  - Pain in extremity [Unknown]
  - Diarrhoea [Unknown]
  - Dyspnoea [Unknown]
  - Urinary tract infection [Unknown]
  - Oedema peripheral [Unknown]
  - Fatigue [Unknown]
